FAERS Safety Report 6291261-5 (Version None)
Quarter: 2009Q3

REPORT INFORMATION
  Report Type: 
  Country: None (occurrence: None)
  Receive Date: 20090728
  Receipt Date: 20090728
  Transmission Date: 20100115
  Serious: No
  Sender: FDA-Public Use
  Company Number: None

PATIENT
  Age: 30 Year
  Sex: Female
  Weight: 104.3273 kg

DRUGS (1)
  1. MIRENA [Suspect]
     Indication: PREGNANCY
     Dates: start: 20081223, end: 20090321

REACTIONS (3)
  - DIZZINESS [None]
  - HEADACHE [None]
  - MOOD SWINGS [None]
